FAERS Safety Report 10784558 (Version 1)
Quarter: 2015Q1

REPORT INFORMATION
  Report Type: Spontaneous
  Country: IT (occurrence: IT)
  Receive Date: 20150211
  Receipt Date: 20150211
  Transmission Date: 20150721
  Serious: Yes (Other)
  Sender: FDA-Public Use
  Company Number: IT-TEVA-538161ISR

PATIENT
  Sex: Male

DRUGS (2)
  1. OLANZAPINA TEVA - 5 MG COMPRESSE ORODISPERSIBILI [Suspect]
     Active Substance: OLANZAPINE
     Indication: PRODUCT USED FOR UNKNOWN INDICATION
     Dosage: 5 MG DAILY. ORODISPERSIBLE TABLET
     Route: 048
  2. DEPAKIN CHRONO - 300 MG COMPRESSE A RILASCIO PROLUNGATO [Concomitant]
     Active Substance: VALPROATE SODIUM
     Indication: PRODUCT USED FOR UNKNOWN INDICATION
     Dosage: 900 MG. ORODISPERSIBLE TABLET.
     Route: 048

REACTIONS (2)
  - Insomnia [Recovering/Resolving]
  - Conduct disorder [Recovering/Resolving]
